FAERS Safety Report 9894927 (Version 1)
Quarter: 2014Q1

REPORT INFORMATION
  Report Type: Spontaneous
  Country: BR (occurrence: BR)
  Receive Date: 20140213
  Receipt Date: 20140213
  Transmission Date: 20141002
  Serious: Yes (Hospitalization, Other)
  Sender: FDA-Public Use
  Company Number: PHHY2014BR018051

PATIENT
  Sex: Male
  Weight: 70 kg

DRUGS (2)
  1. TEGRETOL-XR [Suspect]
     Indication: EPILEPSY
     Dosage: 2 DF (TABLETS), DAILY
     Route: 048
  2. TEGRETOL [Suspect]
     Indication: EPILEPSY
     Dosage: UNK UKN, UNK
     Route: 048

REACTIONS (4)
  - Epilepsy [Recovering/Resolving]
  - Loss of consciousness [Recovering/Resolving]
  - Daydreaming [Recovering/Resolving]
  - Syncope [Recovering/Resolving]
